FAERS Safety Report 12900543 (Version 4)
Quarter: 2017Q1

REPORT INFORMATION
  Report Type: Report from Study
  Country: US (occurrence: US)
  Receive Date: 20161101
  Receipt Date: 20170124
  Transmission Date: 20170428
  Serious: Yes (Hospitalization)
  Sender: FDA-Public Use
  Company Number: US-ACTELION-A-NJ2016-144588

PATIENT
  Age: 35 Year
  Sex: Female

DRUGS (2)
  1. OPSUMIT [Suspect]
     Active Substance: MACITENTAN
     Indication: SICKLE CELL ANAEMIA
     Dosage: 10 MG, QD
     Route: 048
     Dates: start: 20140804
  2. ADEMPAS [Concomitant]
     Active Substance: RIOCIGUAT

REACTIONS (10)
  - Hypotension [Unknown]
  - Pain [Unknown]
  - Sickle cell anaemia with crisis [Unknown]
  - Sepsis [Unknown]
  - Dyspnoea exertional [Unknown]
  - Urinary tract infection [Unknown]
  - Sickle cell anaemia [Unknown]
  - Palpitations [Unknown]
  - Oedema [Unknown]
  - Peripheral swelling [Unknown]
